FAERS Safety Report 18141807 (Version 4)
Quarter: 2020Q3

REPORT INFORMATION
  Report Type: Spontaneous
  Country: IT (occurrence: IT)
  Receive Date: 20200812
  Receipt Date: 20200925
  Transmission Date: 20201103
  Serious: Yes (Death, Life-Threatening, Hospitalization, Other)
  Sender: FDA-Public Use
  Company Number: IT-PFIZER INC-2020307856

PATIENT
  Age: 49 Year
  Sex: Female
  Weight: 50 kg

DRUGS (12)
  1. METHYLPREDNISOLONE. [Suspect]
     Active Substance: METHYLPREDNISOLONE
     Dosage: UNK
  2. MYCOPHENOLATE MOFETIL. [Suspect]
     Active Substance: MYCOPHENOLATE MOFETIL
     Indication: SYSTEMIC LUPUS ERYTHEMATOSUS
  3. MYCOPHENOLATE MOFETIL. [Suspect]
     Active Substance: MYCOPHENOLATE MOFETIL
     Indication: IMMUNOSUPPRESSANT DRUG THERAPY
     Dosage: 500 MG, 3X/DAY (EVERY 8 HRS)
     Route: 048
     Dates: start: 20180408, end: 20180519
  4. MYCOPHENOLATE MOFETIL. [Suspect]
     Active Substance: MYCOPHENOLATE MOFETIL
     Indication: NEPHROTIC SYNDROME
  5. PREDNISONE. [Suspect]
     Active Substance: PREDNISONE
     Indication: ANTIPHOSPHOLIPID SYNDROME
     Dosage: 50 MG, 1X/DAY (QD) (ON ODDS DAYS)
     Route: 048
     Dates: start: 20180301, end: 2018
  6. PREDNISONE. [Suspect]
     Active Substance: PREDNISONE
     Indication: NEPHROTIC SYNDROME
  7. PREDNISONE. [Suspect]
     Active Substance: PREDNISONE
     Indication: LUPUS NEPHRITIS
  8. PREDNISONE. [Suspect]
     Active Substance: PREDNISONE
     Indication: IMMUNOSUPPRESSANT DRUG THERAPY
     Dosage: 37.5 MG, DAILY (ON EVEN DAYS)
     Route: 048
     Dates: start: 2018, end: 20180519
  9. MYCOPHENOLATE MOFETIL. [Suspect]
     Active Substance: MYCOPHENOLATE MOFETIL
     Indication: LUPUS NEPHRITIS
  10. MYCOPHENOLATE MOFETIL. [Suspect]
     Active Substance: MYCOPHENOLATE MOFETIL
     Indication: ANTIPHOSPHOLIPID SYNDROME
  11. METHYLPREDNISOLONE. [Suspect]
     Active Substance: METHYLPREDNISOLONE
     Indication: ANTIPHOSPHOLIPID SYNDROME
     Dosage: 1 G, 1X/DAY
     Dates: start: 2018, end: 2018
  12. PREDNISONE. [Suspect]
     Active Substance: PREDNISONE
     Indication: SYSTEMIC LUPUS ERYTHEMATOSUS

REACTIONS (12)
  - Hepatic haemorrhage [Fatal]
  - Varicella zoster virus infection [Fatal]
  - Hepatic necrosis [Fatal]
  - Acute kidney injury [Fatal]
  - Product use in unapproved indication [Unknown]
  - Multiple organ dysfunction syndrome [Fatal]
  - Hyperglycaemia [Fatal]
  - Hypotension [Unknown]
  - Off label use [Unknown]
  - Viral pharyngitis [Fatal]
  - Respiratory distress [Fatal]
  - Disseminated intravascular coagulation [Unknown]

NARRATIVE: CASE EVENT DATE: 2018
